FAERS Safety Report 9957860 (Version 1)
Quarter: 2014Q1

REPORT INFORMATION
  Report Type: Report from Study
  Country: US (occurrence: US)
  Receive Date: 20140304
  Receipt Date: 20140304
  Transmission Date: 20141002
  Serious: No
  Sender: FDA-Public Use
  Company Number: US-ABBVIE-13P-163-1092115-00

PATIENT
  Sex: Female
  Weight: 81.72 kg

DRUGS (8)
  1. HUMIRA [Suspect]
     Indication: PSORIATIC ARTHROPATHY
     Route: 058
     Dates: start: 201209
  2. SYNTHROID [Concomitant]
     Indication: HYPOTHYROIDISM
  3. VERAPAMIL [Concomitant]
     Indication: ATRIAL FIBRILLATION
  4. LISINOPRIL [Concomitant]
     Indication: HYPERTENSION
  5. XARELTO [Concomitant]
     Indication: ATRIAL FIBRILLATION
  6. LIPITOR [Concomitant]
     Indication: BLOOD CHOLESTEROL INCREASED
  7. DIGOXIN [Concomitant]
     Indication: ATRIAL FIBRILLATION
  8. BOTOX [Concomitant]
     Indication: SPASMODIC DYSPHONIA
     Dosage: EVERY 4-5 MONTHS

REACTIONS (3)
  - Nail bed disorder [Not Recovered/Not Resolved]
  - Meniscus injury [Not Recovered/Not Resolved]
  - Joint injury [Not Recovered/Not Resolved]
